FAERS Safety Report 19415341 (Version 3)
Quarter: 2021Q3

REPORT INFORMATION
  Report Type: Report from Study
  Country: BR (occurrence: BR)
  Receive Date: 20210614
  Receipt Date: 20210706
  Transmission Date: 20211014
  Serious: Yes (Life-Threatening, Hospitalization, Other)
  Sender: FDA-Public Use
  Company Number: BR-PFIZER INC-2021448832

PATIENT
  Age: 13 Year
  Sex: Female
  Weight: 50.2 kg

DRUGS (7)
  1. METHOTREXATE. [Concomitant]
     Active Substance: METHOTREXATE
     Indication: JUVENILE IDIOPATHIC ARTHRITIS
     Dosage: 17 MG, WEEKLY
     Route: 058
     Dates: start: 201709, end: 20210421
  2. TOFACITINIB CITRATE [Suspect]
     Active Substance: TOFACITINIB CITRATE
     Indication: JUVENILE IDIOPATHIC ARTHRITIS
     Dosage: 5 MG, 2X/DAY
     Route: 048
     Dates: start: 20170603, end: 20210421
  3. AMYTRIL [Suspect]
     Active Substance: AMITRIPTYLINE HYDROCHLORIDE
     Dosage: UNK
     Route: 048
     Dates: start: 20210421, end: 20210421
  4. ADDERA D3 [Concomitant]
     Active Substance: CHOLECALCIFEROL
     Indication: JUVENILE IDIOPATHIC ARTHRITIS
     Dosage: 1000 UNK, DAILY
     Route: 048
     Dates: start: 201709, end: 20210421
  5. FLANAX [NAPROXEN SODIUM] [Concomitant]
     Indication: JUVENILE IDIOPATHIC ARTHRITIS
     Dosage: 550 MG, 2X/DAY
     Route: 048
     Dates: start: 201707, end: 20210421
  6. FRONTAL [Suspect]
     Active Substance: ALPRAZOLAM
     Dosage: UNK MG
     Route: 048
     Dates: start: 20210421, end: 20210421
  7. ENDOFOLIN [Concomitant]
     Active Substance: FOLIC ACID
     Indication: JUVENILE IDIOPATHIC ARTHRITIS
     Dosage: 5 MG, 2X/WEEK
     Route: 048
     Dates: start: 201709, end: 20210421

REACTIONS (1)
  - Suicide attempt [Recovered/Resolved]

NARRATIVE: CASE EVENT DATE: 20210421
